FAERS Safety Report 6670240-X (Version None)
Quarter: 2010Q2

REPORT INFORMATION
  Report Type: 
  Country: None (occurrence: None)
  Receive Date: 20100406
  Receipt Date: 20100317
  Transmission Date: 20101027
  Serious: No
  Sender: FDA-Public Use
  Company Number: US-ALLERGAN-1003546US

PATIENT
  Sex: Female

DRUGS (3)
  1. LATISSE [Suspect]
     Indication: GROWTH OF EYELASHES
     Dosage: 1 GTT, QHS
     Route: 061
     Dates: start: 20091231
  2. VYTORIN [Concomitant]
     Indication: BLOOD CHOLESTEROL INCREASED
  3. CENTRUM [Concomitant]

REACTIONS (5)
  - DRY EYE [None]
  - EYE PRURITUS [None]
  - HAIR GROWTH ABNORMAL [None]
  - MILIA [None]
  - SKIN DISCOLOURATION [None]
